FAERS Safety Report 14204536 (Version 6)
Quarter: 2022Q2

REPORT INFORMATION
  Report Type: Report from Study
  Country: JP (occurrence: JP)
  Receive Date: 20171120
  Receipt Date: 20220519
  Transmission Date: 20220720
  Serious: Yes (Death, Hospitalization, Other)
  Sender: FDA-Public Use
  Company Number: JP-BIOGEN-2017BI00478704

PATIENT
  Age: 45 Year
  Sex: Male
  Weight: 70 kg

DRUGS (6)
  1. TYSABRI [Suspect]
     Active Substance: NATALIZUMAB
     Indication: Multiple sclerosis
     Route: 050
     Dates: start: 20171018, end: 20171018
  2. FOSFLUCONAZOLE [Concomitant]
     Active Substance: FOSFLUCONAZOLE
     Route: 050
  3. NAPROXEN SODIUM [Concomitant]
     Active Substance: NAPROXEN SODIUM
     Route: 050
  4. PREDONINE [Concomitant]
     Active Substance: PREDNISOLONE
     Route: 050
     Dates: start: 20131228
  5. ZANTAC [Concomitant]
     Active Substance: RANITIDINE HYDROCHLORIDE
     Route: 050
     Dates: start: 20131228
  6. PREDNISOLONE [Concomitant]
     Active Substance: PREDNISOLONE
     Indication: Multiple sclerosis
     Route: 050
     Dates: start: 20170920

REACTIONS (8)
  - Pyrexia [Fatal]
  - Multiple organ dysfunction syndrome [Fatal]
  - Multiple sclerosis [Fatal]
  - Coma [Fatal]
  - Respiratory failure [Fatal]
  - Peripheral circulatory failure [Fatal]
  - White blood cell count decreased [Recovered/Resolved]
  - Thrombocytopenia [Not Recovered/Not Resolved]

NARRATIVE: CASE EVENT DATE: 20171019
